FAERS Safety Report 4626605-0 (Version None)
Quarter: 2005Q1

REPORT INFORMATION
  Report Type: 
  Country: None (occurrence: None)
  Receive Date: 20050330
  Receipt Date: 20050325
  Transmission Date: 20050727
  Serious: Yes (Hospitalization, Other)
  Sender: FDA-Public Use
  Company Number: KII-2005-0015608

PATIENT
  Age: 13 Year
  Sex: Male

DRUGS (2)
  1. MORPHINE SULFATE [Suspect]
     Indication: PAIN
     Dosage: SEE TEXT, ORAL
     Route: 048
  2. BENZODIAZEPINE DERIVATIVES() [Suspect]
     Indication: MIGRAINE
     Dosage: ORAL
     Route: 048

REACTIONS (10)
  - CYANOSIS [None]
  - LOSS OF CONSCIOUSNESS [None]
  - MENTAL STATUS CHANGES [None]
  - MIOSIS [None]
  - NON-CARDIOGENIC PULMONARY OEDEMA [None]
  - OXYGEN SATURATION DECREASED [None]
  - POLYSUBSTANCE ABUSE [None]
  - PUPILLARY REFLEX IMPAIRED [None]
  - RESPIRATORY RATE DECREASED [None]
  - SELF-MEDICATION [None]
